FAERS Safety Report 7791950-7 (Version None)
Quarter: 2011Q4

REPORT INFORMATION
  Report Type: 
  Country: None (occurrence: None)
  Receive Date: 20111003
  Receipt Date: 20110927
  Transmission Date: 20120403
  Serious: Yes (Other)
  Sender: FDA-Public Use
  Company Number: US-PFIZER INC-2011230173

PATIENT
  Sex: Female
  Weight: 82.993 kg

DRUGS (4)
  1. PREDNISOLONE [Concomitant]
     Dosage: UNK
  2. DIOVAN [Concomitant]
     Indication: HYPERTENSION
     Dosage: 160 MG, DAILY
  3. DORZOLAMIDE [Concomitant]
     Indication: INTRAOCULAR PRESSURE TEST ABNORMAL
     Dosage: UNK
  4. AROMASIN [Suspect]
     Indication: BREAST CANCER
     Dosage: 25 MG, DAILY
     Dates: end: 20110401

REACTIONS (3)
  - CORNEAL GRAFT REJECTION [None]
  - VISUAL IMPAIRMENT [None]
  - OSTEOPENIA [None]
